FAERS Safety Report 6382218-4 (Version None)
Quarter: 2009Q3

REPORT INFORMATION
  Report Type: 
  Country: None (occurrence: None)
  Receive Date: 20090928
  Receipt Date: 20090928
  Transmission Date: 20100115
  Serious: Yes (Other)
  Sender: FDA-Public Use
  Company Number: None

PATIENT
  Age: 69 Year
  Sex: Female
  Weight: 61.2356 kg

DRUGS (3)
  1. DOXYCYCLINE [Suspect]
     Indication: GINGIVAL INFECTION
     Dosage: 50MG DAILY ORAL
     Route: 048
     Dates: start: 20090513, end: 20090804
  2. CITRACAL [Concomitant]
  3. THERAGRAN-M VITAMIN [Concomitant]

REACTIONS (1)
  - HAEMATOCHEZIA [None]
